FAERS Safety Report 9523041 (Version 1)
Quarter: 2013Q3

REPORT INFORMATION
  Report Type: Spontaneous
  Country: US (occurrence: US)
  Receive Date: 20130913
  Receipt Date: 20130913
  Transmission Date: 20140515
  Serious: Yes (Death)
  Sender: FDA-Public Use
  Company Number: CHPA2013US014100

PATIENT
  Sex: Male

DRUGS (1)
  1. MAALOX UNKNOWN [Suspect]
     Dosage: UNK UNK, PRN
     Route: 048

REACTIONS (1)
  - General physical health deterioration [Fatal]
